FAERS Safety Report 5902047-2 (Version None)
Quarter: 2008Q3

REPORT INFORMATION
  Report Type: 
  Country: None (occurrence: None)
  Receive Date: 20080909
  Receipt Date: 20080207
  Transmission Date: 20090109
  Serious: Yes (Other)
  Sender: FDA-Public Use
  Company Number: US-WYE-H02531608

PATIENT
  Age: 53 Year
  Sex: Female

DRUGS (1)
  1. ADVIL [Suspect]
     Indication: HEADACHE
     Dosage: 1 CAPSULE AS NEEDED, ORAL
     Route: 048
     Dates: start: 20070101, end: 20080206

REACTIONS (1)
  - DYSPHAGIA [None]
